FAERS Safety Report 6496901-3 (Version None)
Quarter: 2009Q4

REPORT INFORMATION
  Report Type: 
  Country: None (occurrence: None)
  Receive Date: 20091215
  Receipt Date: 20091207
  Transmission Date: 20100525
  Serious: Yes (Death)
  Sender: FDA-Public Use
  Company Number: US-BIOGENIDEC-2009BI034976

PATIENT
  Age: 73 Year
  Sex: Female

DRUGS (1)
  1. AVONEX [Suspect]
     Indication: MULTIPLE SCLEROSIS
     Route: 030
     Dates: start: 20010703, end: 20030101

REACTIONS (4)
  - ARTHRALGIA [None]
  - FATIGUE [None]
  - INTESTINAL OBSTRUCTION [None]
  - MOBILITY DECREASED [None]
